FAERS Safety Report 18460972 (Version 1)
Quarter: 2020Q4

REPORT INFORMATION
  Report Type: Spontaneous
  Country: DE (occurrence: DE)
  Receive Date: 20201104
  Receipt Date: 20201104
  Transmission Date: 20210114
  Serious: Yes (Hospitalization)
  Sender: FDA-Public Use
  Company Number: DE-ROCHE-2708274

PATIENT
  Sex: Male

DRUGS (2)
  1. XOLAIR [Suspect]
     Active Substance: OMALIZUMAB
     Indication: NASAL POLYPS
     Dosage: UNK
     Route: 065
     Dates: start: 20201005
  2. XOLAIR [Suspect]
     Active Substance: OMALIZUMAB
     Indication: SINUSITIS
     Route: 058
     Dates: start: 202009

REACTIONS (2)
  - Abdominal pain [Unknown]
  - Appendicitis [Recovered/Resolved]

NARRATIVE: CASE EVENT DATE: 20201006
